FAERS Safety Report 4586660-3 (Version None)
Quarter: 2005Q1

REPORT INFORMATION
  Report Type: 
  Country: None (occurrence: None)
  Receive Date: 20050218
  Receipt Date: 20041012
  Transmission Date: 20050727
  Serious: No
  Sender: FDA-Public Use
  Company Number: US-BRISTOL-MYERS SQUIBB COMPANY-12729927

PATIENT
  Age: 40 Year
  Sex: Female

DRUGS (5)
  1. TAXOL [Suspect]
     Indication: BREAST CANCER
     Dosage: INITIATED: OCT-2001.  LAST ADMINISTERED ON 12-OCT-2004.
     Route: 042
     Dates: start: 20041012, end: 20041012
  2. TAXOTERE [Concomitant]
     Indication: BREAST CANCER
  3. MAXALT [Concomitant]
  4. BEXTRA [Concomitant]
  5. LASIX [Concomitant]

REACTIONS (1)
  - OEDEMA [None]
